FAERS Safety Report 4503695-7 (Version None)
Quarter: 2004Q3

REPORT INFORMATION
  Report Type: 
  Country: None (occurrence: None)
  Receive Date: 20040928
  Receipt Date: 20040608
  Transmission Date: 20050211
  Serious: No
  Sender: FDA-Public Use
  Company Number: 04P-163-0263191-00

PATIENT
  Age: 73 Year
  Sex: Female
  Weight: 50.8029 kg

DRUGS (18)
  1. HUMIRA [Suspect]
     Indication: RHEUMATOID ARTHRITIS
     Dosage: 40 MG, 1 IN 2 WK, SUBCUTANEOUS
     Route: 058
     Dates: start: 20030501, end: 20031201
  2. RABEPRAZOLE SODIUM [Suspect]
     Indication: GASTROOESOPHAGEAL REFLUX DISEASE
     Dosage: PER ORAL
     Route: 048
     Dates: start: 20031001, end: 20031031
  3. LANSOPRAZOLE [Concomitant]
  4. CLOPIDOGREL BISULFATE [Concomitant]
  5. ALENDRONATE SODIUM [Concomitant]
  6. MULTI-VITAMINS [Concomitant]
  7. CALCIUM WITH VITAMIN D [Concomitant]
  8. FERROUS GLUCONATE [Concomitant]
  9. ASPIRIN [Concomitant]
  10. EXCEDRIN (MIGRAINE) [Concomitant]
  11. CLONIDINE [Concomitant]
  12. LISINOPRIL [Concomitant]
  13. AMLODIPINE BESYLATE [Concomitant]
  14. METOPROLOL SUCCINATE [Concomitant]
  15. GEMFIBROZIL [Concomitant]
  16. METHOTREXATE SODIUM [Concomitant]
  17. PREDNISONE [Concomitant]
  18. FOLIC ACID [Concomitant]

REACTIONS (7)
  - ANAEMIA [None]
  - BRONCHITIS [None]
  - CELLULITIS [None]
  - CONDITION AGGRAVATED [None]
  - NAIL INFECTION [None]
  - ORAL SOFT TISSUE DISORDER [None]
  - VOMITING [None]
